FAERS Safety Report 4506262-4 (Version None)
Quarter: 2004Q4

REPORT INFORMATION
  Report Type: 
  Country: None (occurrence: None)
  Receive Date: 20041119
  Receipt Date: 20041111
  Transmission Date: 20050328
  Serious: Yes (Other)
  Sender: FDA-Public Use
  Company Number: US-MERCK-0411USA02235

PATIENT
  Sex: Male

DRUGS (1)
  1. VIOXX [Suspect]
     Route: 048

REACTIONS (3)
  - CARDIAC DISORDER [None]
  - HEART INJURY [None]
  - MYOCARDIAL INFARCTION [None]
